FAERS Safety Report 18500360 (Version 2)
Quarter: 2020Q4

REPORT INFORMATION
  Report Type: Report from Study
  Country: MX (occurrence: MX)
  Receive Date: 20201113
  Receipt Date: 20201120
  Transmission Date: 20210114
  Serious: Yes (Death)
  Sender: FDA-Public Use
  Company Number: NVSC2020MX302969

PATIENT
  Age: 51 Year
  Sex: Male
  Weight: 132 kg

DRUGS (4)
  1. JANUMET [Concomitant]
     Active Substance: METFORMIN HYDROCHLORIDE\SITAGLIPTIN PHOSPHATE
     Indication: DIABETES MELLITUS
     Dosage: 1 DF, QD (4 YEARSAGO)
     Route: 048
  2. SPIRONOLACTONE. [Concomitant]
     Active Substance: SPIRONOLACTONE
     Indication: PERIPHERAL VASCULAR DISORDER
     Dosage: 100 MG, QD (2 YEARS)
     Route: 048
  3. ENTRESTO [Suspect]
     Active Substance: SACUBITRIL\VALSARTAN
     Indication: HYPERTENSION
  4. ENTRESTO [Suspect]
     Active Substance: SACUBITRIL\VALSARTAN
     Indication: BLOOD PRESSURE ABNORMAL
     Dosage: 100 MG, QD (STARTED ABOUT 2YEARS AGO)
     Route: 048
     Dates: end: 20200907

REACTIONS (8)
  - Product prescribing error [Unknown]
  - Productive cough [Fatal]
  - Inappropriate schedule of product administration [Unknown]
  - Product use in unapproved indication [Unknown]
  - Respiratory arrest [Fatal]
  - Cough [Fatal]
  - Discomfort [Unknown]
  - Pain [Fatal]

NARRATIVE: CASE EVENT DATE: 20200901
